FAERS Safety Report 9918083 (Version 2)
Quarter: 2014Q1

REPORT INFORMATION
  Report Type: Spontaneous
  Country: US (occurrence: US)
  Receive Date: 20140223
  Receipt Date: 20140223
  Transmission Date: 20141002
  Serious: No
  Sender: FDA-Public Use
  Company Number: US-ALLERGAN-1308838US

PATIENT
  Age: 58 Year
  Sex: Female

DRUGS (1)
  1. TAZORAC CREAM 0.05% [Suspect]
     Indication: PSORIASIS
     Dosage: UNK UNK, QOD
     Route: 061

REACTIONS (4)
  - Inappropriate schedule of drug administration [Unknown]
  - Application site discomfort [Recovered/Resolved]
  - Application site erythema [Recovered/Resolved]
  - Application site exfoliation [Recovered/Resolved]
